FAERS Safety Report 10090420 (Version 2)
Quarter: 2014Q3

REPORT INFORMATION
  Report Type: Spontaneous
  Country: US (occurrence: US)
  Receive Date: 20140421
  Receipt Date: 20140728
  Transmission Date: 20150326
  Serious: Yes (Hospitalization)
  Sender: FDA-Public Use
  Company Number: US-BAYER-2014-057995

PATIENT
  Age: 46 Year
  Sex: Female
  Weight: 86.17 kg

DRUGS (14)
  1. CEPHALEXIN. [Concomitant]
     Active Substance: CEPHALEXIN
     Dosage: 500 MG, UNK
     Route: 048
     Dates: start: 20050414, end: 20090603
  2. PREVACID [Concomitant]
     Active Substance: LANSOPRAZOLE
     Dosage: 30 MG, QD
     Route: 048
     Dates: start: 20020909, end: 20050630
  3. PROCHLORPERAZINE. [Concomitant]
     Active Substance: PROCHLORPERAZINE
     Dosage: 10 MG, UNK
     Dates: start: 20050404, end: 20100426
  4. COUMADIN [Suspect]
     Active Substance: WARFARIN SODIUM
     Indication: PULMONARY EMBOLISM
  5. MEPERIDINE [Concomitant]
     Active Substance: MEPERIDINE
     Dosage: 50 MG, UNK
     Route: 048
     Dates: start: 20050404
  6. ZOLOFT [Concomitant]
     Active Substance: SERTRALINE HYDROCHLORIDE
  7. ACETAMINOPHEN + COD. PHOSP. [Concomitant]
     Dosage: UNK
     Route: 048
     Dates: start: 20050404
  8. CYCLOBENZAPRINE [Concomitant]
     Active Substance: CYCLOBENZAPRINE
     Dosage: 10 MG, UNK
     Route: 048
     Dates: start: 20050419
  9. ATIVAN [Concomitant]
     Active Substance: LORAZEPAM
  10. YASMIN [Suspect]
     Active Substance: DROSPIRENONE\ETHINYL ESTRADIOL
     Indication: PREMENSTRUAL SYNDROME
  11. DIAZEPAM. [Concomitant]
     Active Substance: DIAZEPAM
     Dosage: 5 MG, QD AS NEEDED
     Route: 048
     Dates: start: 20050401
  12. METRONIDAZOLE. [Concomitant]
     Active Substance: METRONIDAZOLE
     Dosage: 500 MG, UNK
     Route: 048
     Dates: start: 20050426
  13. YASMIN [Suspect]
     Active Substance: DROSPIRENONE\ETHINYL ESTRADIOL
     Indication: HORMONE THERAPY
     Dosage: UNK
     Dates: start: 20030401, end: 2005
  14. CIPROFLOXACIN. [Concomitant]
     Active Substance: CIPROFLOXACIN

REACTIONS (2)
  - Pulmonary embolism [None]
  - Injury [None]

NARRATIVE: CASE EVENT DATE: 20050630
